FAERS Safety Report 20506966 (Version 1)
Quarter: 2022Q1

REPORT INFORMATION
  Report Type: Spontaneous
  Country: US (occurrence: US)
  Receive Date: 20220223
  Receipt Date: 20220223
  Transmission Date: 20220423
  Serious: No
  Sender: FDA-Public Use
  Company Number: US-PFIZER INC-202101419317

PATIENT
  Age: 54 Year
  Sex: Male

DRUGS (3)
  1. IBRANCE [Suspect]
     Active Substance: PALBOCICLIB
     Dosage: 125 MG (1 TABLET BY MOUTH ONCE DAILY FROM 1 TO 21, FOLLOWED BY 7 DAYS OFF, REPEATED EVERY)
     Route: 048
  2. TAMOXIFEN CITRATE [Concomitant]
     Active Substance: TAMOXIFEN CITRATE
     Dosage: UNK
  3. NARCO [Concomitant]
     Dosage: UNK

REACTIONS (7)
  - Chest pain [Unknown]
  - Heart rate increased [Unknown]
  - Hypoaesthesia [Unknown]
  - Anxiety [Unknown]
  - Fatigue [Unknown]
  - Dizziness [Unknown]
  - Off label use [Unknown]
